FAERS Safety Report 9282803 (Version 1)
Quarter: 2013Q2

REPORT INFORMATION
  Report Type: Spontaneous
  Country: US (occurrence: None)
  Receive Date: 20130506
  Receipt Date: 20130506
  Transmission Date: 20140414
  Serious: Yes (Other)
  Sender: FDA-Public Use
  Company Number: FK201301404

PATIENT
  Age: 9 Year
  Sex: Female

DRUGS (2)
  1. DOXORUBICIN (DOXORUBICIN) (DOXORUBICIN) [Suspect]
     Indication: HEPATIC NEOPLASM
  2. IFOSFAMIDE [Suspect]
     Indication: HEPATIC NEOPLASM

REACTIONS (4)
  - Pancytopenia [None]
  - Mental status changes [None]
  - Diarrhoea [None]
  - Paraneoplastic syndrome [None]
